FAERS Safety Report 6380331-9 (Version None)
Quarter: 2009Q3

REPORT INFORMATION
  Report Type: 
  Country: None (occurrence: None)
  Receive Date: 20090929
  Receipt Date: 20090918
  Transmission Date: 20100115
  Serious: Yes (Hospitalization, Other)
  Sender: FDA-Public Use
  Company Number: AT-JNJFOC-20090905977

PATIENT
  Age: 67 Year
  Sex: Male

DRUGS (6)
  1. REMICADE [Suspect]
     Route: 042
     Dates: start: 20090615
  2. REMICADE [Suspect]
     Indication: PITYRIASIS RUBRA PILARIS
     Route: 042
     Dates: start: 20090615
  3. AMLODIPINE [Concomitant]
     Route: 048
  4. FENISTIL [Concomitant]
     Route: 048
  5. URBASON [Concomitant]
     Route: 048
  6. NEOTIGASON [Concomitant]
     Route: 048

REACTIONS (3)
  - ACUTE RESPIRATORY DISTRESS SYNDROME [None]
  - CAPILLARY LEAK SYNDROME [None]
  - CRYOGLOBULINAEMIA [None]
